FAERS Safety Report 5010514-1 (Version None)
Quarter: 2006Q2

REPORT INFORMATION
  Report Type: 
  Country: None (occurrence: None)
  Receive Date: 20060525
  Receipt Date: 20051207
  Transmission Date: 20061013
  Serious: No
  Sender: FDA-Public Use
  Company Number: US-GLAXOSMITHKLINE-A0584987A

PATIENT
  Age: 51 Year
  Sex: Male

DRUGS (2)
  1. BACTROBAN [Suspect]
     Indication: NASAL DRYNESS
     Dosage: 1APP UNKNOWN
     Route: 045
     Dates: start: 19990101, end: 19990101
  2. NO CONCURRENT MEDICATION [Concomitant]

REACTIONS (1)
  - DRUG ADMINISTERED AT INAPPROPRIATE SITE [None]
